FAERS Safety Report 8539892-3 (Version None)
Quarter: 2012Q3

REPORT INFORMATION
  Report Type: 
  Country: None (occurrence: None)
  Receive Date: 20120726
  Receipt Date: 20120717
  Transmission Date: 20120928
  Serious: No
  Sender: FDA-Public Use
  Company Number: US-B.I. PHARMACEUTICALS,INC./RIDGEFIELD-2012-BP-07431BP

PATIENT
  Sex: Male
  Weight: 70.76 kg

DRUGS (8)
  1. CRESTOR [Concomitant]
  2. VITAMIN B COMPLEX CAP [Concomitant]
  3. NEXIUM [Concomitant]
  4. COQ10 [Concomitant]
  5. ZANTAC [Concomitant]
  6. ASPIRIN [Concomitant]
  7. NIACIN [Concomitant]
  8. TRADJENTA [Suspect]
     Indication: DIABETES MELLITUS
     Dosage: 5 MG
     Dates: end: 20111213

REACTIONS (1)
  - PANCREATITIS [None]
